FAERS Safety Report 20667340 (Version 1)
Quarter: 2022Q2

REPORT INFORMATION
  Report Type: Report from Study
  Country: CA (occurrence: CA)
  Receive Date: 20220404
  Receipt Date: 20220404
  Transmission Date: 20220720
  Serious: Yes (Other)
  Sender: FDA-Public Use
  Company Number: CA-JNJFOC-20220258773

PATIENT
  Age: 22 Year
  Sex: Female
  Weight: 63 kg

DRUGS (6)
  1. REMICADE [Interacting]
     Active Substance: INFLIXIMAB
     Indication: Colitis ulcerative
     Dosage: RE-INDUCTION?ON 26-MAR-2022, PARTIAL MAYO COMPLETED.
     Route: 042
     Dates: start: 20220203
  2. REMICADE [Interacting]
     Active Substance: INFLIXIMAB
     Dosage: VIAL ROUNDED UP TO 400 MG
     Route: 042
  3. IMURAN [Interacting]
     Active Substance: AZATHIOPRINE
     Indication: Colitis ulcerative
     Route: 065
  4. SEPTRA [Concomitant]
     Active Substance: SULFAMETHOXAZOLE\TRIMETHOPRIM
     Indication: Colitis ulcerative
     Route: 065
  5. PREDNISONE [Concomitant]
     Active Substance: PREDNISONE
     Indication: Colitis ulcerative
     Route: 065
  6. PANTOPRAZOLE [Concomitant]
     Active Substance: PANTOPRAZOLE
     Indication: Colitis ulcerative
     Route: 065

REACTIONS (15)
  - Nausea [Recovering/Resolving]
  - Abdominal pain upper [Recovering/Resolving]
  - Palpitations [Recovering/Resolving]
  - Dyspnoea [Recovering/Resolving]
  - Infusion related reaction [Recovering/Resolving]
  - Skin lesion [Not Recovered/Not Resolved]
  - Bloody discharge [Not Recovered/Not Resolved]
  - Acne [Unknown]
  - Inappropriate schedule of product administration [Unknown]
  - Off label use [Unknown]
  - Incorrect dose administered [Unknown]
  - Drug interaction [Unknown]
  - Rash [Unknown]
  - General physical health deterioration [Unknown]
  - Abdominal pain [Unknown]

NARRATIVE: CASE EVENT DATE: 20220101
